FAERS Safety Report 10344195 (Version 2)
Quarter: 2014Q3

REPORT INFORMATION
  Report Type: Report from Study
  Country: JP (occurrence: JP)
  Receive Date: 20140728
  Receipt Date: 20140728
  Transmission Date: 20150326
  Serious: Yes (Death)
  Sender: FDA-Public Use
  Company Number: JP-ROCHE-GNE302438

PATIENT
  Age: 68 Year
  Sex: Female
  Weight: 47.76 kg

DRUGS (9)
  1. RANIBIZUMAB [Suspect]
     Active Substance: RANIBIZUMAB
     Route: 050
     Dates: start: 20100301, end: 20100301
  2. VISUDYNE [Concomitant]
     Active Substance: VERTEPORFIN
     Indication: PRODUCT USED FOR UNKNOWN INDICATION
     Dosage: UNK
     Route: 065
     Dates: start: 200806, end: 200810
  3. CRAVIT [Concomitant]
     Active Substance: LEVOFLOXACIN
     Indication: PRODUCT USED FOR UNKNOWN INDICATION
     Dosage: UNK
     Route: 065
     Dates: start: 201001, end: 201003
  4. RANIBIZUMAB [Suspect]
     Active Substance: RANIBIZUMAB
     Indication: AGE-RELATED MACULAR DEGENERATION
     Dosage: 0.05 ML, UNKNOWN
     Route: 050
     Dates: start: 20100104
  5. CARVEDILOL. [Concomitant]
     Active Substance: CARVEDILOL
     Indication: PRODUCT USED FOR UNKNOWN INDICATION
  6. LEVOFLOXACIN [Concomitant]
     Active Substance: LEVOFLOXACIN
     Route: 065
     Dates: start: 201001, end: 201003
  7. HERBAL EXTRACTS [Concomitant]
     Indication: PRODUCT USED FOR UNKNOWN INDICATION
  8. RANIBIZUMAB [Suspect]
     Active Substance: RANIBIZUMAB
     Route: 050
     Dates: start: 20100201, end: 20100201
  9. ARTIST [Concomitant]
     Active Substance: CARVEDILOL

REACTIONS (1)
  - Myocardial infarction [Fatal]

NARRATIVE: CASE EVENT DATE: 20100403
